FAERS Safety Report 15323713 (Version 1)
Quarter: 2018Q3

REPORT INFORMATION
  Report Type: Spontaneous
  Country: US (occurrence: US)
  Receive Date: 20180828
  Receipt Date: 20180828
  Transmission Date: 20181010
  Serious: No
  Sender: FDA-Public Use
  Company Number: US-BIOGEN-2017BI00447804

PATIENT
  Age: 46 Year
  Sex: Male

DRUGS (2)
  1. ZINBRYTA [Suspect]
     Active Substance: DACLIZUMAB
     Route: 065
     Dates: start: 20170711
  2. ZINBRYTA [Suspect]
     Active Substance: DACLIZUMAB
     Indication: RELAPSING-REMITTING MULTIPLE SCLEROSIS
     Route: 058

REACTIONS (9)
  - Pain [Unknown]
  - Influenza [Recovered/Resolved]
  - Malaise [Recovered/Resolved]
  - Memory impairment [Not Recovered/Not Resolved]
  - Bacterial infection [Recovered/Resolved]
  - Fatigue [Unknown]
  - Temperature intolerance [Unknown]
  - Myalgia [Unknown]
  - Arthralgia [Unknown]

NARRATIVE: CASE EVENT DATE: 201711
